FAERS Safety Report 22263620 (Version 1)
Quarter: 2023Q2

REPORT INFORMATION
  Report Type: Spontaneous
  Country: ES (occurrence: ES)
  Receive Date: 20230428
  Receipt Date: 20230428
  Transmission Date: 20230721
  Serious: Yes (Hospitalization, Other)
  Sender: FDA-Public Use
  Company Number: None

PATIENT

DRUGS (3)
  1. NUCYNTA [Interacting]
     Active Substance: TAPENTADOL HYDROCHLORIDE
     Indication: Venous ulcer pain
     Dosage: 100 MILLIGRAM, BID
     Route: 048
     Dates: start: 202303, end: 20230309
  2. ORAMORPH SR SUSTAINED RELEASE [Interacting]
     Active Substance: MORPHINE SULFATE
     Indication: Venous ulcer pain
     Dosage: 2 MILLILITRE, 1/HR
     Route: 048
     Dates: start: 202303, end: 20230309
  3. TRAMADOL HYDROCHLORIDE [Interacting]
     Active Substance: TRAMADOL HYDROCHLORIDE
     Indication: Venous ulcer pain
     Dosage: 75 MILLIGRAM, BID
     Route: 048
     Dates: start: 202302, end: 20230309

REACTIONS (7)
  - Myoclonus [Unknown]
  - Dysphagia [Unknown]
  - Somnolence [Unknown]
  - Hallucination, visual [Unknown]
  - Hallucination, auditory [Unknown]
  - Drug interaction [Unknown]
  - Duplicate therapy error [Recovered/Resolved]

NARRATIVE: CASE EVENT DATE: 20230309
